FAERS Safety Report 8155528-8 (Version None)
Quarter: 2012Q1

REPORT INFORMATION
  Report Type: 
  Country: None (occurrence: None)
  Receive Date: 20120222
  Receipt Date: 20120217
  Transmission Date: 20120608
  Serious: Yes (Life-Threatening, Hospitalization)
  Sender: FDA-Public Use
  Company Number: US-BAYER-201013046NA

PATIENT
  Age: 46 Year
  Sex: Female
  Weight: 65.76 kg

DRUGS (10)
  1. CLINDAMYCIN [Concomitant]
     Dosage: UNK
     Route: 067
     Dates: start: 20071128
  2. YASMIN [Suspect]
     Dosage: UNK
     Dates: start: 20070101, end: 20080201
  3. PREDNISONE [Concomitant]
     Dosage: 20 MG, UNK
     Route: 048
  4. MICROGESTIN FE 1.5/30 [Concomitant]
     Dosage: UNK
     Route: 048
     Dates: start: 20071127
  5. HYDROCODONE BITARTRATE AND ACETAMINOPHEN [Concomitant]
     Dosage: 10-325 MG
     Route: 048
  6. ACETAMINOPHEN W/ CODEINE [Concomitant]
     Dosage: 3 DF, UNK
     Route: 048
  7. IMITREX [Concomitant]
     Dosage: 50 MG, UNK
     Route: 048
     Dates: start: 20071115
  8. IBUPROFEN [Concomitant]
     Dosage: 800 MG, UNK
     Route: 048
  9. YAZ [Suspect]
     Dosage: UNK
     Route: 048
     Dates: start: 20070101, end: 20080201
  10. CYCLOBENZAPRINE [Concomitant]
     Dosage: 10 MG, UNK
     Route: 048
     Dates: start: 20080118

REACTIONS (4)
  - CEREBROVASCULAR ACCIDENT [None]
  - CONVULSION [None]
  - SUPERIOR SAGITTAL SINUS THROMBOSIS [None]
  - THROMBOSIS [None]
